FAERS Safety Report 10509048 (Version 1)
Quarter: 2014Q4

REPORT INFORMATION
  Report Type: Spontaneous
  Country: FR (occurrence: FR)
  Receive Date: 20141009
  Receipt Date: 20141009
  Transmission Date: 20150528
  Serious: Yes (Hospitalization)
  Sender: FDA-Public Use
  Company Number: FR-GE HEALTHCARE MEDICAL DIAGNOSTICS-OMPQ-PR-1410S-1258

PATIENT
  Age: 59 Year
  Sex: Male

DRUGS (8)
  1. OMNIPAQUE [Suspect]
     Active Substance: IOHEXOL
     Indication: CONGESTIVE CARDIOMYOPATHY
  2. OMNIPAQUE [Suspect]
     Active Substance: IOHEXOL
     Indication: TRANSPLANT
     Route: 042
     Dates: start: 20140709, end: 20140709
  3. LASILIX SPECIAL [Suspect]
     Active Substance: FUROSEMIDE
     Route: 048
     Dates: end: 20140718
  4. OMNIPAQUE [Suspect]
     Active Substance: IOHEXOL
     Indication: DIAGNOSTIC PROCEDURE
  5. TRIATEC [Suspect]
     Active Substance: RAMIPRIL
     Route: 048
     Dates: end: 20140718
  6. BISOCE [Suspect]
     Active Substance: BISOPROLOL
     Route: 048
  7. OMNIPAQUE [Suspect]
     Active Substance: IOHEXOL
     Indication: CARDIAC FAILURE
  8. PREVISCAN [Suspect]
     Active Substance: FLUINDIONE
     Route: 048
     Dates: end: 20140718

REACTIONS (3)
  - Oedema peripheral [Recovering/Resolving]
  - Ascites [Recovering/Resolving]
  - Acute kidney injury [Recovering/Resolving]

NARRATIVE: CASE EVENT DATE: 201407
